FAERS Safety Report 6257034-4 (Version None)
Quarter: 2009Q3

REPORT INFORMATION
  Report Type: 
  Country: None (occurrence: None)
  Receive Date: 20090706
  Receipt Date: 20090630
  Transmission Date: 20100115
  Serious: Yes (Hospitalization)
  Sender: FDA-Public Use
  Company Number: A0794479A

PATIENT
  Sex: Female

DRUGS (3)
  1. VALTREX [Suspect]
     Indication: HERPES ZOSTER
     Route: 065
     Dates: start: 20071001
  2. LYRICA [Suspect]
     Indication: HERPES ZOSTER
     Route: 065
     Dates: start: 20071001
  3. TEGRETOL [Concomitant]
     Indication: EPILEPSY
     Dosage: 200MG UNKNOWN
     Route: 065
     Dates: start: 19880101

REACTIONS (2)
  - DRUG INTERACTION [None]
  - GRAND MAL CONVULSION [None]
